FAERS Safety Report 9045174 (Version 1)
Quarter: 2013Q1

REPORT INFORMATION
  Report Type: Report from Study
  Country: US (occurrence: US)
  Receive Date: 20130130
  Receipt Date: 20130130
  Transmission Date: 20140127
  Serious: Yes (Hospitalization)
  Sender: FDA-Public Use
  Company Number: US-TEVA-383083USA

PATIENT
  Age: 62 None
  Sex: Female

DRUGS (1)
  1. COPAXONE [Suspect]
     Indication: MULTIPLE SCLEROSIS
     Dates: start: 20100908

REACTIONS (4)
  - Brain abscess [Recovered/Resolved]
  - Renal failure acute [Recovered/Resolved]
  - Memory impairment [Recovered/Resolved]
  - Respiratory disorder [Unknown]
